FAERS Safety Report 9011598 (Version 2)
Quarter: 2013Q1

REPORT INFORMATION
  Report Type: Spontaneous
  Country: DK (occurrence: DK)
  Receive Date: 20130108
  Receipt Date: 20130114
  Transmission Date: 20140127
  Serious: Yes (Disabling)
  Sender: FDA-Public Use
  Company Number: DK-B.I. PHARMACEUTICALS,INC./RIDGEFIELD-2013-SW-00002DB

PATIENT
  Sex: Male

DRUGS (10)
  1. SIFROL [Suspect]
     Indication: PARKINSON^S DISEASE
     Dosage: 2.1 MG
  2. STALEVO [Concomitant]
     Indication: PARKINSON^S DISEASE
  3. CAFFEINE [Concomitant]
  4. SINEMET [Concomitant]
     Indication: PARKINSON^S DISEASE
  5. MADOPAR [Concomitant]
     Indication: PARKINSON^S DISEASE
  6. PROPRANOLOL [Concomitant]
  7. CLOPOXID [Concomitant]
     Indication: ANXIETY
     Dates: start: 20121205
  8. ATROPIN [Concomitant]
     Indication: SALIVARY HYPERSECRETION
  9. BETOLVEX [Concomitant]
     Dosage: STRENGTH: 1 MG
  10. VITAMIN D3 [Concomitant]

REACTIONS (8)
  - Abnormal behaviour [Not Recovered/Not Resolved]
  - Amnesia [Not Recovered/Not Resolved]
  - Feeling abnormal [Not Recovered/Not Resolved]
  - Overdose [Unknown]
  - Dissociation [Unknown]
  - Nightmare [Unknown]
  - Abnormal behaviour [Unknown]
  - Hallucination, auditory [Unknown]
